FAERS Safety Report 16802957 (Version 2)
Quarter: 2019Q4

REPORT INFORMATION
  Report Type: Spontaneous
  Country: DE (occurrence: DE)
  Receive Date: 20190913
  Receipt Date: 20191126
  Transmission Date: 20200122
  Serious: Yes (Other)
  Sender: FDA-Public Use
  Company Number: DE-SUN PHARMACEUTICAL INDUSTRIES LTD-2019RR-219791

PATIENT
  Age: 22 Year
  Sex: Male
  Weight: 130 kg

DRUGS (1)
  1. TAMSULOSIN BASICS 0,4 MG HARTKAPSEL, RETARDIERT [Suspect]
     Active Substance: TAMSULOSIN
     Indication: WHEELCHAIR USER
     Dosage: 1 DOSAGE FORM, DAILY
     Route: 048
     Dates: start: 20190819, end: 20190828

REACTIONS (3)
  - Hypersensitivity [Recovering/Resolving]
  - Rash [Not Recovered/Not Resolved]
  - Product substitution issue [Unknown]

NARRATIVE: CASE EVENT DATE: 20190822
